FAERS Safety Report 16049880 (Version 2)
Quarter: 2019Q2

REPORT INFORMATION
  Report Type: Report from Study
  Country: None (occurrence: TR)
  Receive Date: 20190308
  Receipt Date: 20190405
  Transmission Date: 20190711
  Serious: Yes (Hospitalization)
  Sender: FDA-Public Use
  Company Number: TR-ABBVIE-19S-161-2691953-00

PATIENT
  Age: 82 Year
  Sex: Female
  Weight: 51 kg

DRUGS (7)
  1. DUODOPA [Suspect]
     Active Substance: CARBIDOPA\LEVODOPA
     Dosage: MD(ML): 10,00 CD (ML): 3,60 ED(ML):1,50
     Route: 050
     Dates: start: 20190304
  2. XANAX [Concomitant]
     Active Substance: ALPRAZOLAM
     Indication: SLEEP DISORDER
     Route: 048
     Dates: start: 2015
  3. DILTIZEM [Concomitant]
     Indication: HYPERTENSION
     Dates: start: 2016
  4. DUODOPA [Suspect]
     Active Substance: CARBIDOPA\LEVODOPA
     Indication: PARKINSON^S DISEASE
     Dosage: MD (ML): 10,00 CD (ML): 3,50 ED(ML): 1,00
     Route: 050
     Dates: start: 20190218, end: 20190304
  5. ARICEPT [Concomitant]
     Active Substance: DONEPEZIL HYDROCHLORIDE
     Indication: DEMENTIA
     Route: 048
     Dates: start: 2017
  6. REDEPRA [Concomitant]
     Indication: SLEEP DISORDER
     Route: 048
     Dates: start: 2016
  7. CIPRAM [Concomitant]
     Active Substance: CITALOPRAM HYDROBROMIDE
     Indication: DEPRESSION
     Route: 048
     Dates: start: 2017

REACTIONS (3)
  - Stoma site discharge [Recovered/Resolved]
  - Fungal infection [Recovered/Resolved]
  - Bradykinesia [Recovered/Resolved]

NARRATIVE: CASE EVENT DATE: 20190302
